FAERS Safety Report 12429357 (Version 5)
Quarter: 2016Q4

REPORT INFORMATION
  Report Type: Spontaneous
  Country: US (occurrence: US)
  Receive Date: 20160602
  Receipt Date: 20161205
  Transmission Date: 20170207
  Serious: Yes (Death, Hospitalization, Other)
  Sender: FDA-Public Use
  Company Number: US-JNJFOC-20160528873

PATIENT
  Age: 63 Year
  Sex: Female

DRUGS (2)
  1. ADEMPAS [Suspect]
     Active Substance: RIOCIGUAT
     Indication: PULMONARY HYPERTENSION
     Route: 048
     Dates: start: 20160401
  2. XARELTO [Suspect]
     Active Substance: RIVAROXABAN
     Indication: PRODUCT USED FOR UNKNOWN INDICATION
     Route: 048
     Dates: end: 2016

REACTIONS (9)
  - Nausea [Recovered/Resolved]
  - Death [Fatal]
  - Drug dose omission [Recovered/Resolved]
  - Oedema peripheral [Recovered/Resolved]
  - Stress [Recovered/Resolved]
  - Seizure [Recovered/Resolved]
  - Product label issue [Recovered/Resolved]
  - Haemorrhage [Recovered/Resolved]
  - Product use issue [Recovered/Resolved]

NARRATIVE: CASE EVENT DATE: 2013
